FAERS Safety Report 23754583 (Version 1)
Quarter: 2024Q2

REPORT INFORMATION
  Report Type: Spontaneous
  Country: US (occurrence: US)
  Receive Date: 20240418
  Receipt Date: 20240418
  Transmission Date: 20240716
  Serious: No
  Sender: FDA-Public Use
  Company Number: US-TAKEDA-2024TUS036067

PATIENT
  Sex: Female
  Weight: 66 kg

DRUGS (2)
  1. VYVANSE [Suspect]
     Active Substance: LISDEXAMFETAMINE DIMESYLATE
     Indication: Obsessive-compulsive disorder
     Dosage: 50 MILLIGRAM, QD
     Route: 065
  2. LISDEXAMFETAMINE DIMESYLATE [Suspect]
     Active Substance: LISDEXAMFETAMINE DIMESYLATE
     Indication: Product used for unknown indication
     Dosage: UNK
     Route: 065

REACTIONS (4)
  - Insurance issue [Unknown]
  - Inability to afford medication [Unknown]
  - Product availability issue [Unknown]
  - Inappropriate schedule of product administration [Unknown]
